FAERS Safety Report 8473505-4 (Version None)
Quarter: 2012Q2

REPORT INFORMATION
  Report Type: 
  Country: None (occurrence: None)
  Receive Date: 20120628
  Receipt Date: 20120622
  Transmission Date: 20120825
  Serious: Yes (Hospitalization, Other)
  Sender: FDA-Public Use
  Company Number: CA-BAYER-2012-059908

PATIENT
  Age: 32 Year
  Weight: 68.027 kg

DRUGS (7)
  1. PROTONIX [Concomitant]
  2. RHINOCORT [Concomitant]
  3. MIRENA [Suspect]
     Indication: ENDOMETRIOSIS
     Dosage: 20 MCG/24HR, CONT
     Route: 015
     Dates: start: 20111024, end: 20120518
  4. ADVAIR DISKUS 100/50 [Concomitant]
  5. PROPYLENE GLYCOL [Concomitant]
  6. AZELEX [Concomitant]
  7. MIRENA [Suspect]
     Indication: MENORRHAGIA

REACTIONS (4)
  - UTERINE PERFORATION [None]
  - DEVICE DISLOCATION [None]
  - PELVIC PAIN [None]
  - BACK PAIN [None]
